FAERS Safety Report 8949720 (Version 2)
Quarter: 2013Q1

REPORT INFORMATION
  Report Type: Spontaneous
  Country: CA (occurrence: CA)
  Receive Date: 20121206
  Receipt Date: 20130124
  Transmission Date: 20140127
  Serious: Yes (Other)
  Sender: FDA-Public Use
  Company Number: CA-ROCHE-1164072

PATIENT
  Sex: Male

DRUGS (2)
  1. LUCENTIS [Suspect]
     Indication: DIABETIC RETINAL OEDEMA
     Route: 050
     Dates: start: 20120724
  2. LUCENTIS [Suspect]
     Route: 050
     Dates: start: 20121029

REACTIONS (3)
  - Blindness [Unknown]
  - Retinal disorder [Unknown]
  - Ocular discomfort [Unknown]
